FAERS Safety Report 24742209 (Version 1)
Quarter: 2024Q4

REPORT INFORMATION
  Report Type: Spontaneous
  Country: US (occurrence: None)
  Receive Date: 20241217
  Receipt Date: 20241217
  Transmission Date: 20250114
  Serious: No
  Sender: REDHILL BIOPHARMA INC.
  Company Number: US-RedHill Biopharma Inc.-RDH202407-000034

PATIENT
  Age: 75 Year
  Sex: Female

DRUGS (1)
  1. TALICIA [Suspect]
     Active Substance: AMOXICILLIN\OMEPRAZOLE MAGNESIUM\RIFABUTIN
     Indication: Helicobacter infection
     Dosage: AT 10:00 AM, 06:00 AM AND 02:00 PM.
     Route: 048
     Dates: start: 20240617, end: 20240630

REACTIONS (12)
  - Urine abnormality [Unknown]
  - Influenza like illness [Unknown]
  - Diarrhoea [Unknown]
  - Abdominal pain upper [Unknown]
  - Dyspepsia [Unknown]
  - Fatigue [Unknown]
  - Asthenia [Unknown]
  - Pain [Unknown]
  - Chills [Unknown]
  - Tremor [Unknown]
  - Insomnia [Unknown]
  - Back pain [Unknown]

NARRATIVE: CASE EVENT DATE: 20240601
